FAERS Safety Report 6717598-0 (Version None)
Quarter: 2010Q2

REPORT INFORMATION
  Report Type: 
  Country: None (occurrence: None)
  Receive Date: 20100510
  Receipt Date: 20100501
  Transmission Date: 20101027
  Serious: Yes (Hospitalization)
  Sender: FDA-Public Use
  Company Number: FR-JNJFOC-20100500639

PATIENT
  Age: 38 Year
  Sex: Male
  Weight: 63 kg

DRUGS (3)
  1. RISPERDAL [Suspect]
     Indication: SCHIZOPHRENIA
     Route: 048
  2. RISPERDAL [Suspect]
     Dosage: 2 TABLETS TWICE A DAY
     Route: 048
  3. RISPERDAL [Suspect]
     Route: 065

REACTIONS (2)
  - HOSPITALISATION [None]
  - TREATMENT NONCOMPLIANCE [None]
